FAERS Safety Report 7517088-1 (Version None)
Quarter: 2011Q2

REPORT INFORMATION
  Report Type: 
  Country: None (occurrence: None)
  Receive Date: 20110601
  Receipt Date: 20110520
  Transmission Date: 20111010
  Serious: Yes (Hospitalization)
  Sender: FDA-Public Use
  Company Number: US-UCBSA-030965

PATIENT
  Sex: Female
  Weight: 58 kg

DRUGS (7)
  1. CIMZIA [Suspect]
     Route: 058
     Dates: start: 20110101, end: 20110101
  2. CIMZIA [Suspect]
     Route: 058
     Dates: start: 20110101
  3. CIMZIA [Suspect]
     Indication: CROHN'S DISEASE
     Route: 058
     Dates: start: 20101216, end: 20110408
  4. METHOTREXATE [Concomitant]
     Dosage: 3 PILLS AND THERE 2.5 MG
     Route: 048
     Dates: start: 20101216
  5. CIMZIA [Suspect]
     Dosage: BOOSTER DOSE
     Route: 058
     Dates: start: 20110519
  6. ATENOLOL [Concomitant]
     Route: 048
  7. FOSAMAX [Concomitant]
     Route: 048

REACTIONS (4)
  - INAPPROPRIATE SCHEDULE OF DRUG ADMINISTRATION [None]
  - CLOSTRIDIAL INFECTION [None]
  - DEHYDRATION [None]
  - CROHN'S DISEASE [None]
